FAERS Safety Report 8489795-8 (Version None)
Quarter: 2012Q3

REPORT INFORMATION
  Report Type: 
  Country: None (occurrence: None)
  Receive Date: 20120705
  Receipt Date: 20120627
  Transmission Date: 20120928
  Serious: Yes (Hospitalization)
  Sender: FDA-Public Use
  Company Number: US-ELI_LILLY_AND_COMPANY-US201207000223

PATIENT
  Sex: Male

DRUGS (7)
  1. HUMATROPE [Suspect]
     Dosage: 0.6 MG, QD
     Route: 065
  2. IRON [Concomitant]
  3. HUMATROPE [Suspect]
     Indication: GROWTH HORMONE DEFICIENCY
     Dosage: 0.6 MG, QD
     Route: 065
     Dates: start: 20051201
  4. TESTOSTERONE [Concomitant]
  5. FISH OIL [Concomitant]
  6. MULTI-VITAMIN [Concomitant]
  7. ASPIRIN [Concomitant]
     Dosage: UNK, QD

REACTIONS (1)
  - AORTIC VALVE REPLACEMENT [None]
